FAERS Safety Report 4967517-2 (Version None)
Quarter: 2006Q2

REPORT INFORMATION
  Report Type: 
  Country: None (occurrence: None)
  Receive Date: 20060410
  Receipt Date: 20060216
  Transmission Date: 20061013
  Serious: Yes (Life-Threatening)
  Sender: FDA-Public Use
  Company Number: US-GLAXOSMITHKLINE-A0594029A

PATIENT
  Age: 29 Year
  Sex: Male
  Weight: 96.4 kg

DRUGS (5)
  1. LAMICTAL [Suspect]
     Indication: CONVULSION
     Route: 048
     Dates: start: 20050524
  2. CLOZAPINE [Suspect]
     Dosage: 300MG TWICE PER DAY
     Route: 048
     Dates: start: 20041103, end: 20050817
  3. HALOPERIDOL [Concomitant]
     Dosage: 5MG TWICE PER DAY
     Route: 048
     Dates: start: 20050601
  4. BENZTROPINE MESYLATE [Concomitant]
     Dosage: 1.5MG FOUR TIMES PER DAY
     Route: 048
     Dates: start: 20050104
  5. DEPAKOTE ER [Concomitant]
     Dosage: 2500MG AT NIGHT
     Route: 048
     Dates: start: 20050312, end: 20050912

REACTIONS (4)
  - DEPRESSED LEVEL OF CONSCIOUSNESS [None]
  - DRUG INTERACTION [None]
  - GRAND MAL CONVULSION [None]
  - LOSS OF CONSCIOUSNESS [None]
